FAERS Safety Report 24742017 (Version 1)
Quarter: 2024Q4

REPORT INFORMATION
  Report Type: Spontaneous
  Country: US (occurrence: US)
  Receive Date: 20241217
  Receipt Date: 20241217
  Transmission Date: 20250114
  Serious: No
  Sender: ALVOGEN
  Company Number: US-ALVOGEN-2024095752

PATIENT
  Sex: Female

DRUGS (2)
  1. FENTANYL [Suspect]
     Active Substance: FENTANYL
     Indication: Pain
     Dosage: COMPLAINT PREVIOUS BOX
     Route: 062
  2. FENTANYL [Suspect]
     Active Substance: FENTANYL
     Indication: Pain
     Dosage: EXPIRATION: APR-2027?CURRENT NEWLY OPENED BOX
     Route: 062
     Dates: start: 20241024

REACTIONS (2)
  - Device adhesion issue [Unknown]
  - Device malfunction [Unknown]
